FAERS Safety Report 18659110 (Version 1)
Quarter: 2020Q4

REPORT INFORMATION
  Report Type: Spontaneous
  Country: CA (occurrence: CA)
  Receive Date: 20201224
  Receipt Date: 20201224
  Transmission Date: 20210114
  Serious: Yes (Other)
  Sender: FDA-Public Use
  Company Number: CA-EMD SERONO-9207577

PATIENT
  Sex: Female

DRUGS (1)
  1. REBIF [Suspect]
     Active Substance: INTERFERON BETA-1A
     Indication: MULTIPLE SCLEROSIS
     Dosage: TAKING REBIF FOR 9 YEARS
     Dates: start: 2011

REACTIONS (2)
  - Liver injury [Unknown]
  - Tooth disorder [Unknown]

NARRATIVE: CASE EVENT DATE: 20190701
